FAERS Safety Report 10166093 (Version 7)
Quarter: 2014Q3

REPORT INFORMATION
  Report Type: Report from Study
  Country: CA (occurrence: CA)
  Receive Date: 20140512
  Receipt Date: 20140905
  Transmission Date: 20150326
  Serious: Yes (Life-Threatening, Hospitalization, Other)
  Sender: FDA-Public Use
  Company Number: CA-ROCHE-1322952

PATIENT
  Age: 60 Year
  Sex: Female

DRUGS (24)
  1. ELAVIL [Concomitant]
     Active Substance: AMITRIPTYLINE HYDROCHLORIDE
  2. TYLENOL #1 (CANADA) [Concomitant]
     Active Substance: ACETAMINOPHEN\CAFFEINE\CODEINE PHOSPHATE
  3. VOLTAREN [Concomitant]
     Active Substance: DICLOFENAC SODIUM
  4. RITUXAN [Suspect]
     Active Substance: RITUXIMAB
     Indication: RHEUMATOID ARTHRITIS
     Dosage: PREVIOUS DOSE 30/APR/2014
     Route: 042
     Dates: start: 20131018
  5. LYRICA [Concomitant]
     Active Substance: PREGABALIN
  6. FLEXERIL (CANADA) [Concomitant]
  7. RIMSO-50 [Concomitant]
     Active Substance: DIMETHYL SULFOXIDE
  8. PANTOLOC [Suspect]
     Active Substance: PANTOPRAZOLE SODIUM
     Indication: PRODUCT USED FOR UNKNOWN INDICATION
     Route: 065
  9. TYLENOL ARTHRITIS PAIN [Concomitant]
     Active Substance: ACETAMINOPHEN
  10. ACLASTA [Concomitant]
     Active Substance: ZOLEDRONIC ACID
  11. INDOCID [Concomitant]
     Active Substance: INDOMETHACIN
  12. DEXILANT [Concomitant]
     Active Substance: DEXLANSOPRAZOLE
     Route: 065
  13. SOTALOL. [Suspect]
     Active Substance: SOTALOL
     Indication: ATRIAL TACHYCARDIA
     Route: 065
     Dates: start: 201405
  14. VITAMIN E [Concomitant]
     Active Substance: .ALPHA.-TOCOPHEROL
  15. CYMBALTA [Suspect]
     Active Substance: DULOXETINE HYDROCHLORIDE
     Indication: PRODUCT USED FOR UNKNOWN INDICATION
     Route: 065
     Dates: end: 201312
  16. METHOTREXATE [Concomitant]
     Active Substance: METHOTREXATE
  17. FLAMAZINE [Concomitant]
     Active Substance: SILVER SULFADIAZINE
  18. BICARBONATE [Concomitant]
     Active Substance: BICARBONATE ION
  19. KENALOG (CANADA) [Concomitant]
  20. PLAQUENIL [Concomitant]
     Active Substance: HYDROXYCHLOROQUINE SULFATE
  21. MORPHINE [Concomitant]
     Active Substance: MORPHINE
  22. FLEXERIL (CANADA) [Concomitant]
  23. BENZYDAMINE [Concomitant]
     Active Substance: BENZYDAMINE
  24. HEPARIN [Concomitant]
     Active Substance: HEPARIN SODIUM

REACTIONS (12)
  - Palpitations [Not Recovered/Not Resolved]
  - Drug ineffective [Unknown]
  - Dizziness [Not Recovered/Not Resolved]
  - Headache [Not Recovered/Not Resolved]
  - Pruritus generalised [Not Recovered/Not Resolved]
  - Diarrhoea [Recovered/Resolved]
  - White blood cell count decreased [Unknown]
  - Presyncope [Not Recovered/Not Resolved]
  - Arthralgia [Unknown]
  - Pain [Unknown]
  - Atrial tachycardia [Unknown]
  - Neutropenia [Unknown]

NARRATIVE: CASE EVENT DATE: 201312
